FAERS Safety Report 25287525 (Version 1)
Quarter: 2025Q2

REPORT INFORMATION
  Report Type: Report from Study
  Country: US (occurrence: US)
  Receive Date: 20250509
  Receipt Date: 20250509
  Transmission Date: 20250717
  Serious: No
  Sender: IPSEN BIOPHARMACEUTICALS, INC.
  Company Number: US-IPSEN Group, Research and Development-2025-00284

PATIENT
  Age: 24 Year
  Sex: Female

DRUGS (7)
  1. BYLVAY [Suspect]
     Active Substance: ODEVIXIBAT
     Indication: Progressive familial intrahepatic cholestasis
     Dosage: SPRINKLE/MIX CONTENTS OF ONE 200 MCG ORAL PELLET WITH LIQUID AND INGEST WITH BREAKFAST
     Route: 048
     Dates: start: 20240815
  2. BYLVAY [Suspect]
     Active Substance: ODEVIXIBAT
     Indication: Primary biliary cholangitis
  3. BYLVAY [Suspect]
     Active Substance: ODEVIXIBAT
     Indication: Off label use
  4. PANTOPRAZOLE [Concomitant]
     Active Substance: PANTOPRAZOLE
  5. CREON [Concomitant]
     Active Substance: PANCRELIPASE AMYLASE\PANCRELIPASE LIPASE\PANCRELIPASE PROTEASE
  6. URSODIOL [Concomitant]
     Active Substance: URSODIOL
  7. INSULIN [NOT SPECIFIED] [Concomitant]

REACTIONS (2)
  - Hepatic enzyme increased [Unknown]
  - Off label use [Unknown]

NARRATIVE: CASE EVENT DATE: 20240815
